FAERS Safety Report 12621129 (Version 1)
Quarter: 2016Q3

REPORT INFORMATION
  Report Type: Spontaneous
  Country: US (occurrence: US)
  Receive Date: 20160804
  Receipt Date: 20160804
  Transmission Date: 20161109
  Serious: No
  Sender: FDA-Public Use
  Company Number: US-BAYER-2016-143228

PATIENT
  Age: 90 Year
  Sex: Female
  Weight: 61.22 kg

DRUGS (4)
  1. MIRALAX [Suspect]
     Active Substance: POLYETHYLENE GLYCOL 3350
     Indication: CONSTIPATION
     Dosage: UNK
  2. LINACLOTIDE [Concomitant]
     Active Substance: LINACLOTIDE
     Dosage: UNK
  3. BENEFIBER [Concomitant]
     Active Substance: STARCH, WHEAT
     Dosage: UNK
  4. MILK OF MAGNESIA CHERRY [Concomitant]
     Active Substance: MAGNESIUM HYDROXIDE

REACTIONS (2)
  - Constipation [None]
  - Diarrhoea [Recovered/Resolved]
